FAERS Safety Report 7565854-9 (Version None)
Quarter: 2011Q2

REPORT INFORMATION
  Report Type: 
  Country: None (occurrence: None)
  Receive Date: 20110623
  Receipt Date: 20110620
  Transmission Date: 20111010
  Serious: No
  Sender: FDA-Public Use
  Company Number: US-PFIZER INC-2011136362

PATIENT
  Sex: Male
  Weight: 88.435 kg

DRUGS (1)
  1. VIAGRA [Suspect]
     Indication: SEXUAL ACTIVITY INCREASED
     Dosage: 50 MG, AS NEEDED
     Route: 048
     Dates: start: 20090101

REACTIONS (2)
  - RASH [None]
  - DRUG EFFECT DELAYED [None]
